FAERS Safety Report 10612289 (Version 1)
Quarter: 2014Q4

REPORT INFORMATION
  Report Type: Spontaneous
  Country: US (occurrence: US)
  Receive Date: 20141127
  Receipt Date: 20141127
  Transmission Date: 20150529
  Serious: Yes (Death, Other)
  Sender: FDA-Public Use
  Company Number: US-BRISTOL-MYERS SQUIBB COMPANY-21633441

PATIENT
  Age: 65 Year
  Sex: Female
  Weight: 78 kg

DRUGS (7)
  1. TRAMADOL [Concomitant]
     Active Substance: TRAMADOL
  2. FLUOROURACIL. [Suspect]
     Active Substance: FLUOROURACIL
     Indication: PANCREATIC CARCINOMA
     Route: 040
  3. DASATINIB [Suspect]
     Active Substance: DASATINIB
     Indication: PANCREATIC CARCINOMA
     Dates: start: 20141119
  4. OXALIPLATIN. [Suspect]
     Active Substance: OXALIPLATIN
     Indication: PANCREATIC CARCINOMA
  5. LEUCOVORIN [Suspect]
     Active Substance: LEUCOVORIN
     Indication: PANCREATIC CARCINOMA
  6. STRATTERA [Concomitant]
     Active Substance: ATOMOXETINE HYDROCHLORIDE
  7. TRAZODONE HYDROCHLORIDE. [Concomitant]
     Active Substance: TRAZODONE HYDROCHLORIDE

REACTIONS (4)
  - Death [Fatal]
  - Nausea [Unknown]
  - Ascites [Unknown]
  - Dyspnoea [Unknown]

NARRATIVE: CASE EVENT DATE: 20141121
